FAERS Safety Report 5252765-7 (Version None)
Quarter: 2007Q1

REPORT INFORMATION
  Report Type: 
  Country: None (occurrence: None)
  Receive Date: 20070301
  Receipt Date: 20061127
  Transmission Date: 20070707
  Serious: No
  Sender: FDA-Public Use
  Company Number: S06-USA-04809-01

PATIENT
  Age: 43 Year
  Sex: Female

DRUGS (4)
  1. LAMOTRIGINE [Suspect]
     Indication: DEPRESSION
     Route: 048
     Dates: start: 20060305, end: 20061031
  2. LEXAPRO [Suspect]
     Indication: DEPRESSION
     Dosage: 15MG PER DAY
     Route: 048
     Dates: start: 20061013
  3. VITAMINS [Concomitant]
  4. FLAXSEED [Concomitant]

REACTIONS (3)
  - DRY EYE [None]
  - INSOMNIA [None]
  - THIRST [None]
